FAERS Safety Report 9894780 (Version 3)
Quarter: 2014Q1

REPORT INFORMATION
  Report Type: Report from Study
  Country: US (occurrence: US)
  Receive Date: 20140213
  Receipt Date: 20140312
  Transmission Date: 20141002
  Serious: Yes (Hospitalization)
  Sender: FDA-Public Use
  Company Number: US-ACTELION-A-US2013-92791

PATIENT
  Age: 13 Month
  Sex: Male

DRUGS (3)
  1. TRACLEER [Suspect]
     Indication: PULMONARY ARTERIAL HYPERTENSION
     Dosage: UNK
     Route: 048
     Dates: start: 20130702
  2. SILDENAFIL [Concomitant]
     Dosage: UNK
  3. LASIX [Concomitant]

REACTIONS (4)
  - Otitis media [Unknown]
  - Middle ear effusion [Unknown]
  - Ear tube insertion [Unknown]
  - Ear infection [Unknown]
